FAERS Safety Report 15387715 (Version 1)
Quarter: 2018Q3

REPORT INFORMATION
  Report Type: Spontaneous
  Country: FR (occurrence: FR)
  Receive Date: 20180914
  Receipt Date: 20180914
  Transmission Date: 20181010
  Serious: Yes (Hospitalization)
  Sender: FDA-Public Use
  Company Number: FR-009507513-1809FRA001430

PATIENT
  Age: 31 Year
  Sex: Female

DRUGS (4)
  1. GONAL?F [Suspect]
     Active Substance: FOLLITROPIN
     Indication: CONTROLLED OVARIAN STIMULATION
     Dosage: 125 IU, QD
     Route: 058
     Dates: start: 20171013, end: 20171017
  2. OVITRELLE [Suspect]
     Active Substance: CHORIOGONADOTROPIN ALFA
     Indication: OVULATION INDUCTION
     Dosage: IN TOTAL
     Route: 058
     Dates: start: 20171022, end: 20171022
  3. ORGALUTRAN [Suspect]
     Active Substance: GANIRELIX ACETATE
     Indication: CONTROLLED OVARIAN STIMULATION
     Dosage: 0.25 MG, QD
     Route: 058
     Dates: start: 20171018, end: 20171021
  4. GONAL?F [Suspect]
     Active Substance: FOLLITROPIN
     Dosage: 75 IU, QD
     Route: 058
     Dates: start: 20171018, end: 20171021

REACTIONS (3)
  - Abdominal pain [Recovered/Resolved]
  - Ovarian hyperstimulation syndrome [Recovered/Resolved]
  - Retroperitoneal effusion [Recovered/Resolved]

NARRATIVE: CASE EVENT DATE: 20171105
